FAERS Safety Report 22964292 (Version 2)
Quarter: 2023Q4

REPORT INFORMATION
  Report Type: Spontaneous
  Country: GB (occurrence: GB)
  Receive Date: 20230921
  Receipt Date: 20231008
  Transmission Date: 20240110
  Serious: No
  Sender: FDA-Public Use
  Company Number: GB-JNJFOC-20230867787

PATIENT
  Age: 33 Year
  Sex: Male
  Weight: 85.2 kg

DRUGS (1)
  1. SIMPONI [Suspect]
     Active Substance: GOLIMUMAB
     Indication: Ankylosing spondylitis
     Dosage: STRENGTH 100.00 MG/ML
     Route: 058

REACTIONS (6)
  - Device deployment issue [Unknown]
  - Underdose [Unknown]
  - Accidental exposure to product [Unknown]
  - Arthralgia [Unknown]
  - Condition aggravated [Unknown]
  - Adverse event [Unknown]
